FAERS Safety Report 7469138-9 (Version None)
Quarter: 2011Q2

REPORT INFORMATION
  Report Type: 
  Country: None (occurrence: None)
  Receive Date: 20110510
  Receipt Date: 20110328
  Transmission Date: 20111010
  Serious: Yes (Hospitalization, Other)
  Sender: FDA-Public Use
  Company Number: US-BAYER-201021843NA

PATIENT
  Age: 24 Year
  Sex: Female
  Weight: 77.098 kg

DRUGS (12)
  1. SYMBICORT [Concomitant]
     Dosage: 2 PUFFS 2X DAILY
  2. ATARAX [ALPRAZOLAM] [Concomitant]
     Indication: MULTIPLE ALLERGIES
     Dosage: 10 MG DAILY
  3. CALCIUM [CALCIUM] [Concomitant]
  4. DROSPIRENONE AND ETHINYL ESTRADIOL [Suspect]
     Indication: CONTRACEPTION
     Dosage: UNK
     Route: 048
     Dates: start: 20050101
  5. FLEXERIL [Concomitant]
  6. CLARITIN [Concomitant]
  7. YASMIN [Suspect]
     Indication: CONTRACEPTION
     Dosage: UNK
     Route: 048
     Dates: start: 20050101
  8. MULTIVITAMIN PREPARATION + MINERAL SUPPLEMENT [Concomitant]
  9. VENTOLIN [Concomitant]
     Dosage: AS NEEDED FOR EMERGENCIES
  10. XANAX [Concomitant]
     Dosage: AS NEEDED
  11. QUESTRAN [Concomitant]
  12. PEPCID [CALCIUM CARBONATE,FAMOTIDINE,MAGNESIUM HYDROXIDE] [Concomitant]
     Dosage: 1 DAILY

REACTIONS (4)
  - CHOLELITHIASIS [None]
  - PAIN [None]
  - PANCREATITIS [None]
  - ABDOMINAL TENDERNESS [None]
